FAERS Safety Report 21362100 (Version 1)
Quarter: 2022Q3

REPORT INFORMATION
  Report Type: Spontaneous
  Country: US (occurrence: US)
  Receive Date: 20220922
  Receipt Date: 20220922
  Transmission Date: 20221026
  Serious: No
  Sender: FDA-Public Use
  Company Number: US-Accord-274030

PATIENT
  Sex: Male

DRUGS (1)
  1. LEUPROLIDE MESYLATE [Suspect]
     Active Substance: LEUPROLIDE MESYLATE
     Indication: Product used for unknown indication
     Dates: start: 20220607

REACTIONS (1)
  - Blood testosterone increased [Unknown]

NARRATIVE: CASE EVENT DATE: 20220728
